FAERS Safety Report 7045840-8 (Version None)
Quarter: 2010Q4

REPORT INFORMATION
  Report Type: 
  Country: None (occurrence: None)
  Receive Date: 20101013
  Receipt Date: 20101013
  Transmission Date: 20110411
  Serious: Yes (Other)
  Sender: FDA-Public Use
  Company Number: None

PATIENT
  Age: 54 Year
  Sex: Female
  Weight: 89.8122 kg

DRUGS (1)
  1. OXYCONTIN [Suspect]
     Indication: ANALGESIC THERAPY
     Dosage: 160 MG EVERY 12 HRS PO
     Route: 048
     Dates: start: 20040601

REACTIONS (9)
  - DRUG EFFECT DECREASED [None]
  - FAECES DISCOLOURED [None]
  - HEADACHE [None]
  - HYPERHIDROSIS [None]
  - NAUSEA [None]
  - PAIN [None]
  - PRODUCT FORMULATION ISSUE [None]
  - PRODUCT SOLUBILITY ABNORMAL [None]
  - QUALITY OF LIFE DECREASED [None]
